FAERS Safety Report 8960522 (Version 1)
Quarter: 2012Q4

REPORT INFORMATION
  Report Type: Spontaneous
  Country: GB (occurrence: None)
  Receive Date: 20121203
  Receipt Date: 20121203
  Transmission Date: 20130627
  Serious: Yes (Hospitalization)
  Sender: FDA-Public Use
  Company Number: THQ2012A10578

PATIENT
  Age: 45 Year
  Sex: Female

DRUGS (4)
  1. LANSOPRAZOLE (LANSOPRAZOLE) [Suspect]
     Route: 048
  2. VENLAFAXINE HCL [Suspect]
     Route: 048
  3. REBIF [Suspect]
     Route: 058
     Dates: start: 2007, end: 201204
  4. MODAFINIL [Suspect]
     Route: 048

REACTIONS (6)
  - Pancreatitis acute [None]
  - Pancreatitis chronic [None]
  - Drug interaction [None]
  - Gamma-glutamyltransferase increased [None]
  - Aspartate aminotransferase increased [None]
  - Alanine aminotransferase increased [None]
